FAERS Safety Report 6185660-X (Version None)
Quarter: 2009Q2

REPORT INFORMATION
  Report Type: 
  Country: None (occurrence: None)
  Receive Date: 20090511
  Receipt Date: 20090430
  Transmission Date: 20091009
  Serious: Yes (Other)
  Sender: FDA-Public Use
  Company Number: PHHY2009GB09989

PATIENT
  Sex: Female

DRUGS (10)
  1. CLOZARIL [Suspect]
     Indication: SCHIZOPHRENIA
     Dosage: UNK
     Route: 048
     Dates: start: 20021001, end: 20090313
  2. CLOZARIL [Suspect]
     Dosage: 325 MG
     Dates: start: 20040107, end: 20040401
  3. CLOZARIL [Suspect]
     Dosage: 425 MG
     Dates: start: 20040401, end: 20060719
  4. CLOZARIL [Suspect]
     Dosage: 350 MG
     Dates: start: 20060719, end: 20081104
  5. CLOZARIL [Suspect]
     Dosage: 300 MG
     Dates: start: 20081104, end: 20090317
  6. HYOSCINE [Concomitant]
     Dosage: 300 MG
     Route: 048
     Dates: start: 20040107, end: 20040401
  7. GLIMEPIRIDE [Concomitant]
     Indication: TYPE 2 DIABETES MELLITUS
     Dosage: 3 MG
     Route: 048
     Dates: start: 20040401, end: 20071116
  8. METFORMIN HCL [Concomitant]
     Indication: TYPE 2 DIABETES MELLITUS
     Dosage: UNK
     Dates: start: 20071116
  9. ATORVASTATIN [Concomitant]
     Indication: HYPERTENSION
     Dosage: UNK
     Dates: start: 20040401
  10. RISPERIDONE [Concomitant]
     Indication: SCHIZOPHRENIA
     Dosage: 50 MG, BIW
     Route: 030
     Dates: start: 20090301

REACTIONS (7)
  - GANGRENE [None]
  - GASTROINTESTINAL CARCINOMA [None]
  - LIMB INJURY [None]
  - RECTAL HAEMORRHAGE [None]
  - TREATMENT NONCOMPLIANCE [None]
  - TYPE 2 DIABETES MELLITUS [None]
  - WEIGHT DECREASED [None]
